FAERS Safety Report 7620185-3 (Version None)
Quarter: 2011Q3

REPORT INFORMATION
  Report Type: 
  Country: None (occurrence: None)
  Receive Date: 20110719
  Receipt Date: 20110705
  Transmission Date: 20111222
  Serious: Yes (Other)
  Sender: FDA-Public Use
  Company Number: PHHY2011CA37646

PATIENT
  Sex: Female

DRUGS (4)
  1. SERTRALINE HYDROCHLORIDE [Concomitant]
     Dosage: 75 MG, UNK
  2. LOXAPINE HCL [Concomitant]
     Dosage: 25 MG, BID
  3. CLOZAPINE [Suspect]
     Indication: SCHIZOAFFECTIVE DISORDER
     Dosage: 350 MG, DAILY
     Dates: start: 20081219
  4. TOPAMAX [Concomitant]
     Dosage: 100 MG, UNK

REACTIONS (10)
  - ANTIPSYCHOTIC DRUG LEVEL INCREASED [None]
  - HEPATIC CIRRHOSIS [None]
  - HAEMATOCRIT DECREASED [None]
  - DIABETES MELLITUS [None]
  - RED BLOOD CELL COUNT DECREASED [None]
  - HEPATOMEGALY [None]
  - RED CELL DISTRIBUTION WIDTH INCREASED [None]
  - ANXIETY [None]
  - HAEMOGLOBIN DECREASED [None]
  - MEAN CELL VOLUME DECREASED [None]
